FAERS Safety Report 11625834 (Version 4)
Quarter: 2015Q4

REPORT INFORMATION
  Report Type: Report from Study
  Country: FI (occurrence: FI)
  Receive Date: 20151013
  Receipt Date: 20151109
  Transmission Date: 20160304
  Serious: Yes (Hospitalization)
  Sender: FDA-Public Use
  Company Number: FI-ABBVIE-15P-055-1476230-00

PATIENT
  Age: 62 Year
  Sex: Male

DRUGS (6)
  1. ASA-RATIOPHARM [Concomitant]
     Active Substance: ASPIRIN
     Indication: HYPERTENSION
  2. DUODOPA [Suspect]
     Active Substance: CARBIDOPA\LEVODOPA
     Indication: PARKINSON^S DISEASE
     Dosage: CD 4.5-5 ML/H
     Route: 050
     Dates: start: 2010, end: 201507
  3. ISANGINA [Concomitant]
     Indication: HYPERTENSION
  4. DUODOPA [Suspect]
     Active Substance: CARBIDOPA\LEVODOPA
     Dosage: MD 3.6; CD 4.2-5.0; ED 1; NIGHT 2.3
     Route: 050
     Dates: start: 20151014
  5. SOMAC [Concomitant]
     Active Substance: PANTOPRAZOLE SODIUM
     Indication: PRODUCT USED FOR UNKNOWN INDICATION
  6. VITAMIN B [Concomitant]
     Active Substance: VITAMIN B
     Indication: PRODUCT USED FOR UNKNOWN INDICATION

REACTIONS (8)
  - Stoma site discharge [Unknown]
  - Device breakage [Unknown]
  - Abasia [Not Recovered/Not Resolved]
  - Stoma site inflammation [Unknown]
  - Stoma site discharge [Unknown]
  - Nerve compression [Not Recovered/Not Resolved]
  - Pneumonia [Recovered/Resolved]
  - Neuralgia [Unknown]

NARRATIVE: CASE EVENT DATE: 2015
